FAERS Safety Report 5091149-1 (Version None)
Quarter: 2006Q3

REPORT INFORMATION
  Report Type: 
  Country: None (occurrence: None)
  Receive Date: 20060829
  Receipt Date: 20060821
  Transmission Date: 20061208
  Serious: Yes (Hospitalization)
  Sender: FDA-Public Use
  Company Number: CH-JNJFOC-20060704365

PATIENT
  Age: 49 Year
  Sex: Female
  Weight: 52 kg

DRUGS (1)
  1. REMICADE [Suspect]
     Indication: POLYARTHRITIS
     Dosage: 1ST INFUSION
     Route: 042

REACTIONS (15)
  - ABDOMINAL DISCOMFORT [None]
  - ABDOMINAL PAIN [None]
  - APATHY [None]
  - DEMYELINATION [None]
  - FEELING OF BODY TEMPERATURE CHANGE [None]
  - GASTROINTESTINAL DISORDER [None]
  - HEART RATE INCREASED [None]
  - IMPAIRED HEALING [None]
  - MENSTRUAL DISORDER [None]
  - MOOD SWINGS [None]
  - NEURALGIA [None]
  - PARAESTHESIA [None]
  - POLYNEUROPATHY [None]
  - SLEEP DISORDER [None]
  - WEIGHT DECREASED [None]
